FAERS Safety Report 19052956 (Version 14)
Quarter: 2024Q1

REPORT INFORMATION
  Report Type: Other
  Country: ZA (occurrence: None)
  Receive Date: 20210324
  Receipt Date: 20240319
  Transmission Date: 20240409
  Serious: Yes (Hospitalization, Other)
  Sender: FDA-Public Use
  Company Number: ZA-ROCHE-2793696

PATIENT
  Age: 5 Year
  Sex: Male

DRUGS (17)
  1. ACTEMRA [Suspect]
     Active Substance: TOCILIZUMAB
     Indication: Encephalitis autoimmune
     Dosage: 162 MG WEEKLY X 4 MONTHS REPEAT X 6
     Route: 058
  2. ACTEMRA [Suspect]
     Active Substance: TOCILIZUMAB
     Dosage: SOMETIMES USES ONLY EVERY 3 WEEKS
     Route: 058
     Dates: start: 20210112
  3. ACTEMRA [Suspect]
     Active Substance: TOCILIZUMAB
     Route: 058
     Dates: start: 20210112
  4. ACTEMRA [Suspect]
     Active Substance: TOCILIZUMAB
     Route: 058
  5. MABTHERA [Suspect]
     Active Substance: RITUXIMAB
     Indication: Juvenile idiopathic arthritis
     Dosage: NOT SURE HOW PATIENT USED THE MABTHERA
     Route: 041
  6. MABTHERA [Suspect]
     Active Substance: RITUXIMAB
     Indication: Encephalitis autoimmune
     Dosage: 6-MONTHLY (REST OF DOSAGE IS UNKNOWN)
     Route: 041
  7. POLYGAM [Suspect]
     Active Substance: HUMAN IMMUNOGLOBULIN G
     Indication: Product used for unknown indication
     Dosage: 12GM 50 ML, 1GM 50 ML
     Route: 042
  8. TOFACITINIB [Suspect]
     Active Substance: TOFACITINIB
     Indication: Product used for unknown indication
     Route: 048
  9. VITAMINS [Concomitant]
     Active Substance: VITAMINS
  10. XELJANZ [Concomitant]
     Active Substance: TOFACITINIB CITRATE
  11. EPILIM [Concomitant]
     Active Substance: VALPROATE SODIUM
  12. GABAPENTIN [Concomitant]
     Active Substance: GABAPENTIN
  13. PAX (SOUTH AFRICA) [Concomitant]
  14. TEGRETOL [Concomitant]
     Active Substance: CARBAMAZEPINE
     Dosage: 100MG/5 ML
  15. TOPAMAX [Concomitant]
     Active Substance: TOPIRAMATE
  16. CLOBAZAM [Concomitant]
     Active Substance: CLOBAZAM
  17. VIMPAT [Concomitant]
     Active Substance: LACOSAMIDE

REACTIONS (8)
  - Pseudomonas infection [Unknown]
  - Immunosuppression [Unknown]
  - Off label use [Unknown]
  - White blood cell count decreased [Unknown]
  - Oral disorder [Unknown]
  - Cognitive disorder [Unknown]
  - Antibody test abnormal [Unknown]
  - Chronic gastritis [Recovered/Resolved]

NARRATIVE: CASE EVENT DATE: 20210311
